FAERS Safety Report 24619621 (Version 1)
Quarter: 2024Q4

REPORT INFORMATION
  Report Type: Other
  Country: NL (occurrence: GR)
  Receive Date: 20241114
  Receipt Date: 20241114
  Transmission Date: 20250115
  Serious: Yes (Hospitalization, Other)
  Sender: KOWA PHARM
  Company Number: None

PATIENT

DRUGS (4)
  1. PITAVASTATIN [Suspect]
     Active Substance: PITAVASTATIN
     Indication: Product used for unknown indication
     Dosage: 1 MG
     Dates: start: 20231110, end: 20231210
  2. ATORVASTATIN CALCIUM\EZETIMIBE [Suspect]
     Active Substance: ATORVASTATIN CALCIUM\EZETIMIBE
     Indication: Product used for unknown indication
     Dosage: 1 DF
     Dates: start: 20231218, end: 20240118
  3. EZETIMIBE [Suspect]
     Active Substance: EZETIMIBE
     Indication: Product used for unknown indication
     Dosage: 10 MG
     Dates: start: 20230209, end: 20231109
  4. SIMVASTATIN [Suspect]
     Active Substance: SIMVASTATIN
     Indication: Product used for unknown indication
     Dosage: 40 MG
     Dates: start: 20130314, end: 20130514

REACTIONS (2)
  - Bone pain [Recovered/Resolved]
  - Myalgia [Recovered/Resolved]

NARRATIVE: CASE EVENT DATE: 20130314
